FAERS Safety Report 16443390 (Version 1)
Quarter: 2019Q2

REPORT INFORMATION
  Report Type: Report from Study
  Country: IT (occurrence: IT)
  Receive Date: 20190618
  Receipt Date: 20190618
  Transmission Date: 20190711
  Serious: Yes (Other)
  Sender: FDA-Public Use
  Company Number: IT-BRISTOL-MYERS SQUIBB COMPANY-BMS-2019-055152

PATIENT
  Age: 64 Year
  Sex: Female

DRUGS (1)
  1. WARFARIN SODIUM. [Suspect]
     Active Substance: WARFARIN SODIUM
     Indication: ATRIAL FIBRILLATION
     Dosage: 23.75 MILLIGRAM, QWK
     Route: 048
     Dates: start: 20150601, end: 20190529

REACTIONS (2)
  - Erysipelas [Unknown]
  - Oedema [Unknown]

NARRATIVE: CASE EVENT DATE: 20190503
